FAERS Safety Report 9757466 (Version 1)
Quarter: 2013Q4

REPORT INFORMATION
  Report Type: Spontaneous
  Country: US (occurrence: US)
  Receive Date: 20131215
  Receipt Date: 20131215
  Transmission Date: 20140711
  Serious: Yes (Other)
  Sender: FDA-Public Use
  Company Number: US-009507513-1312USA005907

PATIENT
  Sex: Female

DRUGS (1)
  1. IMPLANON [Suspect]
     Dosage: UNK
     Route: 059

REACTIONS (5)
  - Surgery [Unknown]
  - Device difficult to use [Unknown]
  - Medical device complication [Unknown]
  - General anaesthesia [Unknown]
  - No adverse event [Unknown]
